FAERS Safety Report 16754450 (Version 1)
Quarter: 2019Q4

REPORT INFORMATION
  Report Type: Spontaneous
  Country: US (occurrence: US)
  Receive Date: 20190828
  Receipt Date: 20190828
  Transmission Date: 20200122
  Serious: No
  Sender: FDA-Public Use
  Company Number: None

PATIENT
  Age: 58 Year
  Sex: Female
  Weight: 74.25 kg

DRUGS (1)
  1. XIIDRA [Suspect]
     Active Substance: LIFITEGRAST
     Indication: DRY EYE
     Dosage: ?          QUANTITY:1 DROP(S);?
     Route: 047
     Dates: start: 20190819, end: 20190822

REACTIONS (2)
  - Urticaria [None]
  - Product substitution issue [None]

NARRATIVE: CASE EVENT DATE: 20190821
